FAERS Safety Report 5771995-9 (Version None)
Quarter: 2008Q2

REPORT INFORMATION
  Report Type: 
  Country: None (occurrence: None)
  Receive Date: 20080613
  Receipt Date: 20080603
  Transmission Date: 20081010
  Serious: Yes (Hospitalization, Other)
  Sender: FDA-Public Use
  Company Number: CA-JNJFOC-20040301259

PATIENT
  Sex: Female

DRUGS (8)
  1. INFLIXIMAB [Suspect]
     Route: 042
  2. INFLIXIMAB [Suspect]
     Route: 042
  3. INFLIXIMAB [Suspect]
     Indication: PSORIATIC ARTHROPATHY
     Route: 042
  4. PLACEBO [Suspect]
     Indication: PSORIATIC ARTHROPATHY
     Route: 042
  5. METHOTREXATE [Concomitant]
  6. FOLIC ACID [Concomitant]
  7. FELDENE [Concomitant]
  8. NEXIUM [Concomitant]

REACTIONS (7)
  - ADENOCARCINOMA PANCREAS [None]
  - BACK PAIN [None]
  - BRONCHITIS [None]
  - DIZZINESS [None]
  - INFLUENZA [None]
  - INFUSION RELATED REACTION [None]
  - TENDONITIS [None]
